FAERS Safety Report 11704234 (Version 1)
Quarter: 2015Q4

REPORT INFORMATION
  Report Type: Spontaneous
  Country: KR (occurrence: KR)
  Receive Date: 20151106
  Receipt Date: 20151106
  Transmission Date: 20160304
  Serious: Yes (Hospitalization, Other)
  Sender: FDA-Public Use
  Company Number: KR-WATSON-2015-23503

PATIENT
  Age: 26 Year
  Sex: Female

DRUGS (2)
  1. QUININE SULPHATE (UNKNOWN) [Suspect]
     Active Substance: QUININE
     Indication: PLASMODIUM VIVAX INFECTION
     Dosage: UNK
     Route: 065
  2. CLINDAMYCIN (UNKNOWN) [Suspect]
     Active Substance: CLINDAMYCIN\CLINDAMYCIN PHOSPHATE
     Indication: PLASMODIUM VIVAX INFECTION
     Dosage: UNK
     Route: 065

REACTIONS (3)
  - Maternal exposure during pregnancy [Unknown]
  - Foetal death [Unknown]
  - Abortion [Unknown]
